FAERS Safety Report 5840254-8 (Version None)
Quarter: 2008Q3

REPORT INFORMATION
  Report Type: 
  Country: None (occurrence: None)
  Receive Date: 20080807
  Receipt Date: 20080807
  Transmission Date: 20090109
  Serious: Yes (Life-Threatening, Disabling, Other)
  Sender: FDA-Public Use
  Company Number: None

PATIENT
  Sex: Male
  Weight: 83.9154 kg

DRUGS (1)
  1. ZETIA [Suspect]
     Indication: HYPERLIPIDAEMIA
     Dosage: 1 DAILY PO
     Route: 048
     Dates: start: 20041001, end: 20070501

REACTIONS (1)
  - TONSIL CANCER [None]
